FAERS Safety Report 17077146 (Version 3)
Quarter: 2019Q4

REPORT INFORMATION
  Report Type: Report from Study
  Country: CA (occurrence: CA)
  Receive Date: 20191126
  Receipt Date: 20191213
  Transmission Date: 20200122
  Serious: Yes (Other)
  Sender: FDA-Public Use
  Company Number: CA-GLAXOSMITHKLINE-CA2019AMR208352

PATIENT
  Age: 55 Year
  Sex: Female

DRUGS (2)
  1. MEPOLIZUMAB [Suspect]
     Active Substance: MEPOLIZUMAB
     Dosage: 100 MG, Z(MONTHLY)
     Route: 042
  2. MEPOLIZUMAB [Suspect]
     Active Substance: MEPOLIZUMAB
     Indication: ASTHMA
     Dosage: 100 MG, Z(MONTHLY)
     Route: 042
     Dates: start: 20170119

REACTIONS (5)
  - Hepatic failure [Unknown]
  - Diverticulitis [Unknown]
  - Renal function test normal [Unknown]
  - Product dose omission [Unknown]
  - Hepatic enzyme decreased [Unknown]

NARRATIVE: CASE EVENT DATE: 20191205
